FAERS Safety Report 4380060-7 (Version None)
Quarter: 2004Q2

REPORT INFORMATION
  Report Type: 
  Country: None (occurrence: None)
  Receive Date: 20040614
  Receipt Date: 20040528
  Transmission Date: 20050107
  Serious: Yes (Hospitalization)
  Sender: FDA-Public Use
  Company Number: DSA_24488_2004

PATIENT
  Age: 70 Year
  Sex: Male

DRUGS (5)
  1. ENALAPRIL MALEATE [Suspect]
     Indication: HYPERTENSION
     Dosage: 10 MG BID PO
     Route: 048
     Dates: start: 20040519, end: 20040519
  2. CARDICOR [Suspect]
     Indication: CORONARY ARTERY DISEASE
     Dosage: 2.5 MG QD PO
     Route: 048
     Dates: start: 20040519, end: 20040519
  3. ASPIRIN [Concomitant]
  4. ATENOLOL [Concomitant]
  5. SIMVASTATIN [Concomitant]

REACTIONS (1)
  - HYPOTENSION [None]
